FAERS Safety Report 7993547-2 (Version None)
Quarter: 2011Q4

REPORT INFORMATION
  Report Type: 
  Country: None (occurrence: None)
  Receive Date: 20111219
  Receipt Date: 20111208
  Transmission Date: 20120403
  Serious: Yes (Hospitalization)
  Sender: FDA-Public Use
  Company Number: SE-ASTRAZENECA-2011SE74277

PATIENT
  Age: 40 Year
  Sex: Female

DRUGS (4)
  1. SEROQUEL XR [Suspect]
     Indication: AFFECTIVE DISORDER
     Route: 048
     Dates: start: 20110914
  2. SEROQUEL XR [Suspect]
     Route: 048
     Dates: end: 20111103
  3. SEROQUEL XR [Suspect]
     Route: 048
     Dates: start: 20111001
  4. LITHIUM CARBONATE [Concomitant]

REACTIONS (3)
  - AGGRESSION [None]
  - CONDITION AGGRAVATED [None]
  - IRRITABILITY [None]
